FAERS Safety Report 5583719-9 (Version None)
Quarter: 2008Q1

REPORT INFORMATION
  Report Type: 
  Country: None (occurrence: None)
  Receive Date: 20080102
  Receipt Date: 20071219
  Transmission Date: 20080703
  Serious: Yes (Hospitalization, Disabling)
  Sender: FDA-Public Use
  Company Number: WAES 0501ITA00011

PATIENT
  Age: 65 Year
  Sex: Male

DRUGS (2)
  1. VIOXX [Suspect]
     Indication: NEOPLASM PROPHYLAXIS
     Dosage: 25 MG/DAILY/PO
     Route: 048
     Dates: start: 20010719, end: 20040719
  2. ACETAMINOPHEN [Suspect]
     Indication: PROPHYLAXIS
     Dosage: PRN/PO
     Route: 048
     Dates: start: 20010606, end: 20040701

REACTIONS (5)
  - ACUTE CORONARY SYNDROME [None]
  - CARDIAC FAILURE [None]
  - COLONIC POLYP [None]
  - CONGESTIVE CARDIOMYOPATHY [None]
  - DISEASE RECURRENCE [None]
